FAERS Safety Report 4603184-5 (Version None)
Quarter: 2005Q1

REPORT INFORMATION
  Report Type: 
  Country: None (occurrence: None)
  Receive Date: 20050307
  Receipt Date: 20050221
  Transmission Date: 20050727
  Serious: Yes (Hospitalization, Other)
  Sender: FDA-Public Use
  Company Number: 2005-00627

PATIENT
  Age: 47 Year
  Sex: Female

DRUGS (2)
  1. TRELSTAR DEPOT [Suspect]
     Indication: UTERINE LEIOMYOMA
     Dosage: 3.75 MG/28 DAYS, INTRAMUSCULAR
     Route: 030
  2. IRON (IRON) [Concomitant]

REACTIONS (8)
  - DIZZINESS [None]
  - HEADACHE [None]
  - HEART RATE INCREASED [None]
  - HYPERTENSION [None]
  - MICROALBUMINURIA [None]
  - NECK PAIN [None]
  - NIGHTMARE [None]
  - VENTRICULAR HYPERTROPHY [None]
